FAERS Safety Report 5034122-1 (Version None)
Quarter: 2006Q2

REPORT INFORMATION
  Report Type: 
  Country: None (occurrence: None)
  Receive Date: 20060626
  Receipt Date: 20060619
  Transmission Date: 20061013
  Serious: Yes (Hospitalization, Other)
  Sender: FDA-Public Use
  Company Number: US-AVENTIS-200615293US

PATIENT
  Sex: Female

DRUGS (2)
  1. LOVENOX [Suspect]
     Indication: THROMBOSIS PROPHYLAXIS
     Route: 058
     Dates: start: 20060613
  2. ATENOLOL [Concomitant]
     Dosage: DOSE: UNKNOWN

REACTIONS (2)
  - ATRIAL FIBRILLATION [None]
  - HYPOKALAEMIA [None]
